FAERS Safety Report 6252040-8 (Version None)
Quarter: 2009Q2

REPORT INFORMATION
  Report Type: 
  Country: None (occurrence: None)
  Receive Date: 20090630
  Receipt Date: 20040927
  Transmission Date: 20091009
  Serious: Yes (Hospitalization)
  Sender: FDA-Public Use
  Company Number: US-ROCHE-638578

PATIENT
  Sex: Male

DRUGS (12)
  1. ENFUVIRTIDE [Suspect]
     Indication: HIV INFECTION
     Route: 065
     Dates: start: 20040604, end: 20040910
  2. LEXIVA [Concomitant]
     Dosage: DOSE: 2 TABLETS, FREQUENCY: QD (EVERY DAY)
     Dates: start: 20040604, end: 20040910
  3. NORVIR [Concomitant]
     Dosage: FREQUENCY: QD (EVERY DAY)
     Dates: start: 20040604, end: 20040910
  4. REYATAZ [Concomitant]
     Dosage: FREQUENCY: QD (EVERY DAY)
     Dates: start: 20040604, end: 20040910
  5. CRIXIVAN [Concomitant]
     Dates: start: 20040910, end: 20050101
  6. KALETRA [Concomitant]
     Dates: start: 20040910, end: 20050101
  7. BIAXIN [Concomitant]
     Dates: start: 20011203, end: 20040927
  8. SPORANOX [Concomitant]
     Dates: start: 20020605, end: 20040806
  9. ETHAMBUTOL [Concomitant]
     Dates: start: 20040514, end: 20040101
  10. MYCELEX [Concomitant]
     Dates: start: 20040823
  11. RIFABUTIN [Concomitant]
     Dates: start: 20040823, end: 20040924
  12. VALTREX [Concomitant]
     Dates: start: 20040910

REACTIONS (1)
  - COLITIS [None]
